FAERS Safety Report 24763910 (Version 1)
Quarter: 2024Q4

REPORT INFORMATION
  Report Type: Spontaneous
  Country: US (occurrence: US)
  Receive Date: 20241223
  Receipt Date: 20241223
  Transmission Date: 20250114
  Serious: Yes (Death, Hospitalization)
  Sender: ALEXION PHARMACEUTICALS
  Company Number: US-ASTRAZENECA-202412USA015642US

PATIENT
  Age: 87 Year

DRUGS (19)
  1. CRESTOR [Suspect]
     Active Substance: ROSUVASTATIN CALCIUM
  2. GLIMEPIRIDE [Suspect]
     Active Substance: GLIMEPIRIDE
  3. DILTIAZEM [Suspect]
     Active Substance: DILTIAZEM
  4. CARVEDILOL [Suspect]
     Active Substance: CARVEDILOL
     Route: 065
  5. POTASSIUM [Suspect]
     Active Substance: POTASSIUM
  6. LISINOPRIL [Suspect]
     Active Substance: LISINOPRIL
     Route: 065
  7. FUROSEMIDE [Suspect]
     Active Substance: FUROSEMIDE
  8. TAMSULOSIN [Suspect]
     Active Substance: TAMSULOSIN
  9. ACETAZOLAMIDE [Suspect]
     Active Substance: ACETAZOLAMIDE
  10. APIXABAN [Suspect]
     Active Substance: APIXABAN
  11. ASPIRIN [Suspect]
     Active Substance: ASPIRIN
  12. CINNAMON [Suspect]
     Active Substance: CINNAMON
  13. FAMOTIDINE [Suspect]
     Active Substance: FAMOTIDINE
  14. FERROUS SULFATE [Suspect]
     Active Substance: FERROUS SULFATE
  15. LORATADINE [Suspect]
     Active Substance: LORATADINE
  16. METFORMIN [Suspect]
     Active Substance: METFORMIN HYDROCHLORIDE
  17. VITAMINS [Suspect]
     Active Substance: VITAMINS
  18. FISH OIL [Suspect]
     Active Substance: FISH OIL
  19. TRAMADOL [Suspect]
     Active Substance: TRAMADOL

REACTIONS (2)
  - Toxicity to various agents [Fatal]
  - Medication error [Fatal]
